FAERS Safety Report 7243399-3 (Version None)
Quarter: 2011Q1

REPORT INFORMATION
  Report Type: 
  Country: None (occurrence: None)
  Receive Date: 20110125
  Receipt Date: 20110111
  Transmission Date: 20110831
  Serious: No
  Sender: FDA-Public Use
  Company Number: JP-ELI_LILLY_AND_COMPANY-JP201101002846

PATIENT
  Age: 43 Year
  Sex: Female

DRUGS (2)
  1. CIALIS [Suspect]
     Route: 048
     Dates: start: 20110101
  2. CIALIS [Suspect]
     Indication: PULMONARY HYPERTENSION
     Route: 048
     Dates: start: 20101219

REACTIONS (3)
  - OFF LABEL USE [None]
  - WRONG TECHNIQUE IN DRUG USAGE PROCESS [None]
  - VISUAL ACUITY REDUCED [None]
